FAERS Safety Report 16307061 (Version 3)
Quarter: 2019Q2

REPORT INFORMATION
  Report Type: Spontaneous
  Country: US (occurrence: US)
  Receive Date: 20190513
  Receipt Date: 20190529
  Transmission Date: 20190711
  Serious: Yes (Other)
  Sender: FDA-Public Use
  Company Number: US-AMGEN-USASP2019073810

PATIENT
  Age: 65 Year
  Sex: Male
  Weight: 97.51 kg

DRUGS (1)
  1. AIMOVIG [Suspect]
     Active Substance: ERENUMAB-AOOE
     Indication: PRODUCT USED FOR UNKNOWN INDICATION
     Dosage: UNK
     Route: 065
     Dates: start: 20180702, end: 201903

REACTIONS (2)
  - Osteoarthritis [Unknown]
  - Myelopathy [Unknown]

NARRATIVE: CASE EVENT DATE: 201902
